FAERS Safety Report 6251277-1 (Version None)
Quarter: 2009Q2

REPORT INFORMATION
  Report Type: 
  Country: None (occurrence: None)
  Receive Date: 20090630
  Receipt Date: 20090623
  Transmission Date: 20091009
  Serious: Yes (Other)
  Sender: FDA-Public Use
  Company Number: US-BAYER-200840669NA

PATIENT
  Age: 61 Year
  Sex: Female
  Weight: 64 kg

DRUGS (10)
  1. NEXAVAR [Suspect]
     Indication: MALIGNANT MELANOMA
     Dosage: TOTAL DAILY DOSE: 400 MG  UNIT DOSE: 200 MG
     Route: 048
     Dates: start: 20090102
  2. NEXAVAR [Suspect]
     Route: 048
     Dates: start: 20081013, end: 20081021
  3. NEXAVAR [Suspect]
     Route: 048
     Dates: start: 20081207, end: 20081212
  4. NEXAVAR [Suspect]
     Dosage: TOTAL DAILY DOSE: 800 MG  UNIT DOSE: 200 MG
     Route: 048
  5. NEXAVAR [Suspect]
     Dosage: TOTAL DAILY DOSE: 200 MG  UNIT DOSE: 200 MG
     Route: 048
     Dates: start: 20081209
  6. TEMODAR [Concomitant]
     Dosage: 2 TABLETS ORALLY EVERY EVENING
     Route: 048
     Dates: start: 20081013, end: 20090610
  7. LYRICA [Concomitant]
  8. GABAPENTIN [Concomitant]
  9. ELAVIL [Concomitant]
  10. ZOMETA [Concomitant]
     Dates: start: 20090101

REACTIONS (5)
  - FATIGUE [None]
  - NAUSEA [None]
  - RASH ERYTHEMATOUS [None]
  - SWELLING FACE [None]
  - VAGINAL DISCHARGE [None]
